FAERS Safety Report 8220965-X (Version None)
Quarter: 2012Q1

REPORT INFORMATION
  Report Type: 
  Country: None (occurrence: None)
  Receive Date: 20120320
  Receipt Date: 20120309
  Transmission Date: 20120608
  Serious: Yes (Other)
  Sender: FDA-Public Use
  Company Number: US-SANOFI-AVENTIS-2011SA084949

PATIENT
  Age: 46 Year
  Sex: Male
  Weight: 77.1 kg

DRUGS (4)
  1. ENOXAPARIN SODIUM [Suspect]
     Route: 058
     Dates: start: 20110905, end: 20111223
  2. ENOXAPARIN SODIUM [Suspect]
     Indication: ANTICOAGULANT THERAPY
     Route: 058
     Dates: start: 20110905, end: 20111223
  3. ENOXAPARIN SODIUM [Suspect]
     Route: 058
     Dates: start: 20120106
  4. ENOXAPARIN SODIUM [Suspect]
     Route: 058
     Dates: start: 20120106

REACTIONS (2)
  - ABDOMINAL INJURY [None]
  - PRODUCT QUALITY ISSUE [None]
